FAERS Safety Report 17017971 (Version 2)
Quarter: 2019Q4

REPORT INFORMATION
  Report Type: Report from Study
  Country: EG (occurrence: EG)
  Receive Date: 20191111
  Receipt Date: 20191114
  Transmission Date: 20200122
  Serious: Yes (Other)
  Sender: FDA-Public Use
  Company Number: NVSC2019EG029334

PATIENT
  Age: 11 Year
  Sex: Male
  Weight: 33 kg

DRUGS (1)
  1. OMNITROPE [Suspect]
     Active Substance: SOMATROPIN
     Indication: GROWTH HORMONE DEFICIENCY
     Dosage: 0.86 MG
     Route: 058
     Dates: start: 20191028

REACTIONS (3)
  - Injection site extravasation [Recovered/Resolved]
  - Incorrect dose administered [Recovered/Resolved]
  - Injection site discolouration [Not Recovered/Not Resolved]

NARRATIVE: CASE EVENT DATE: 20191028
